FAERS Safety Report 6229896-8 (Version None)
Quarter: 2009Q2

REPORT INFORMATION
  Report Type: 
  Country: None (occurrence: None)
  Receive Date: 20090615
  Receipt Date: 20090602
  Transmission Date: 20091009
  Serious: Yes (Hospitalization, Other)
  Sender: FDA-Public Use
  Company Number: FR-ELI_LILLY_AND_COMPANY-FR200906000324

PATIENT
  Sex: Female

DRUGS (8)
  1. PROZAC [Suspect]
     Indication: DEPRESSION
     Dosage: UNK, UNK
     Route: 048
     Dates: start: 20080301
  2. LEVOTHYROX [Concomitant]
     Dosage: UNK, UNK
     Dates: start: 20080301
  3. MEDIATOR [Concomitant]
     Indication: DIABETES MELLITUS
     Dosage: 150 MG, UNK
     Route: 048
     Dates: start: 19980101, end: 20080101
  4. NOCTRAN 10 [Concomitant]
     Dosage: 10 MG, UNK
     Route: 048
     Dates: start: 20080301
  5. LAROXYL [Concomitant]
     Dosage: UNK, UNK
     Dates: start: 20080301
  6. NEULEPTIL [Concomitant]
     Dosage: UNK, UNK
     Dates: start: 20080301
  7. TAHOR [Concomitant]
     Dosage: UNK, UNK
     Dates: start: 20080301
  8. ART 50 [Concomitant]
     Dosage: UNK, UNK
     Route: 048
     Dates: start: 20080301

REACTIONS (3)
  - MITRAL VALVE DISEASE [None]
  - MITRAL VALVE INCOMPETENCE [None]
  - PLEURAL EFFUSION [None]
